FAERS Safety Report 13401707 (Version 1)
Quarter: 2017Q2

REPORT INFORMATION
  Report Type: Spontaneous
  Country: US (occurrence: US)
  Receive Date: 20170404
  Receipt Date: 20170404
  Transmission Date: 20170830
  Serious: Yes (Other)
  Sender: FDA-Public Use
  Company Number: US-ASTRAZENECA-2016SE78710

PATIENT
  Sex: Female

DRUGS (6)
  1. SINGULAIR [Concomitant]
     Active Substance: MONTELUKAST SODIUM
  2. ZETONNA [Suspect]
     Active Substance: CICLESONIDE
     Indication: EYE PRURITUS
     Dosage: ONE SPRAY EACH NOSTRIL DAILY
     Route: 045
  3. ZETONNA [Suspect]
     Active Substance: CICLESONIDE
     Indication: LACRIMATION INCREASED
     Dosage: ONE SPRAY EACH NOSTRIL DAILY
     Route: 045
  4. ZETONNA [Suspect]
     Active Substance: CICLESONIDE
     Indication: SEASONAL ALLERGY
     Dosage: ONE SPRAY EACH NOSTRIL DAILY
     Route: 045
  5. ZETONNA [Suspect]
     Active Substance: CICLESONIDE
     Indication: SNEEZING
     Dosage: ONE SPRAY EACH NOSTRIL DAILY
     Route: 045
  6. PROAIR HFA [Concomitant]
     Active Substance: ALBUTEROL SULFATE
     Indication: DYSPNOEA
     Dosage: TWICE, UNKNOWN

REACTIONS (9)
  - Malaise [Recovered/Resolved]
  - Lung disorder [Recovered/Resolved]
  - Palpitations [Recovered/Resolved]
  - Dyspnoea [Recovered/Resolved]
  - Seizure like phenomena [Recovered/Resolved]
  - Anxiety [Recovered/Resolved]
  - Rash [Recovered/Resolved]
  - Dizziness [Recovered/Resolved]
  - Urticaria [Recovered/Resolved]
